FAERS Safety Report 5019752-5 (Version None)
Quarter: 2006Q2

REPORT INFORMATION
  Report Type: 
  Country: None (occurrence: None)
  Receive Date: 20060607
  Receipt Date: 20060508
  Transmission Date: 20061013
  Serious: Yes (Death, Life-Threatening)
  Sender: FDA-Public Use
  Company Number: PHBS2006JP06851

PATIENT
  Age: 76 Year
  Sex: Male

DRUGS (5)
  1. TEGRETOL [Suspect]
     Indication: HYPOAESTHESIA
     Dosage: UNK, UNK
     Route: 048
     Dates: start: 20060201, end: 20060301
  2. GASTER [Concomitant]
     Dosage: UNK, UNK
     Route: 048
     Dates: start: 20060101, end: 20060301
  3. ADRENAL HORMONE PREPARATIONS [Concomitant]
     Indication: GLOMERULONEPHRITIS
     Route: 048
  4. RISPERDAL [Concomitant]
     Indication: HYPOAESTHESIA
     Route: 048
     Dates: start: 20060201, end: 20060301
  5. ENDOXAN [Concomitant]
     Indication: GLOMERULONEPHRITIS
     Route: 065

REACTIONS (3)
  - APLASTIC ANAEMIA [None]
  - INFECTION [None]
  - PANCYTOPENIA [None]
